FAERS Safety Report 11654731 (Version 1)
Quarter: 2015Q4

REPORT INFORMATION
  Report Type: Spontaneous
  Country: GB (occurrence: None)
  Receive Date: 20151022
  Receipt Date: 20151022
  Transmission Date: 20160304
  Serious: Yes (Disabling, Other)
  Sender: FDA-Public Use
  Company Number: None

PATIENT
  Age: 17 Year
  Sex: Female

DRUGS (1)
  1. NEXPLANON [Suspect]
     Active Substance: ETONOGESTREL

REACTIONS (14)
  - Insomnia [None]
  - Asthenia [None]
  - Activities of daily living impaired [None]
  - Abdominal pain upper [None]
  - Agitation [None]
  - Depression [None]
  - Nervousness [None]
  - Menorrhagia [None]
  - Anger [None]
  - Malaise [None]
  - Anxiety [None]
  - Fatigue [None]
  - Hot flush [None]
  - Emotional disorder [None]

NARRATIVE: CASE EVENT DATE: 20150823
